FAERS Safety Report 9490355 (Version 1)
Quarter: 2013Q3

REPORT INFORMATION
  Report Type: Spontaneous
  Country: US (occurrence: US)
  Receive Date: 20130830
  Receipt Date: 20130830
  Transmission Date: 20140515
  Serious: No
  Sender: FDA-Public Use
  Company Number: US-009507513-1308USA014582

PATIENT
  Sex: 0

DRUGS (1)
  1. NASONEX [Suspect]
     Dosage: ONE OR TWO SPRAYS IN EACH NOSTRIL, QD AS NEEDED
     Route: 045
     Dates: start: 2011

REACTIONS (3)
  - Drug dose omission [Unknown]
  - No adverse event [Unknown]
  - Product quality issue [Unknown]
